FAERS Safety Report 25579231 (Version 1)
Quarter: 2025Q3

REPORT INFORMATION
  Report Type: Spontaneous
  Country: US (occurrence: US)
  Receive Date: 20250718
  Receipt Date: 20250718
  Transmission Date: 20251021
  Serious: No
  Sender: NOVO NORDISK
  Company Number: US-NOVOPROD-1249576

PATIENT
  Age: 63 Year
  Sex: Female

DRUGS (2)
  1. WEGOVY [Suspect]
     Active Substance: SEMAGLUTIDE
     Indication: Product used for unknown indication
     Route: 058
  2. DUPILUMAB [Concomitant]
     Active Substance: DUPILUMAB
     Indication: Nasal polyps
     Route: 058

REACTIONS (1)
  - Weight increased [Unknown]
